FAERS Safety Report 6184711-6 (Version None)
Quarter: 2009Q2

REPORT INFORMATION
  Report Type: 
  Country: None (occurrence: None)
  Receive Date: 20090508
  Receipt Date: 20090506
  Transmission Date: 20091009
  Serious: No
  Sender: FDA-Public Use
  Company Number: CA-EISAI INC.-E2080-00153-CLI-CA

PATIENT
  Sex: Female
  Weight: 89.7 kg

DRUGS (4)
  1. E2080 [Suspect]
     Indication: EPILEPSY
     Route: 048
     Dates: start: 20090331, end: 20090501
  2. CARBAMAZEPINE [Concomitant]
     Dosage: 600 MG BID
     Route: 048
     Dates: start: 20050315
  3. LEVETIRACETAM [Concomitant]
     Dosage: 1000MG BID
     Route: 048
     Dates: start: 20050128
  4. TOPIRAMATE [Concomitant]
     Dosage: 100MG BID
     Route: 048
     Dates: start: 20061004

REACTIONS (4)
  - ABNORMAL BEHAVIOUR [None]
  - ANXIETY [None]
  - FEELING ABNORMAL [None]
  - PSYCHOTIC DISORDER [None]
